FAERS Safety Report 24458255 (Version 1)
Quarter: 2024Q4

REPORT INFORMATION
  Report Type: Spontaneous
  Country: ES (occurrence: ES)
  Receive Date: 20241018
  Receipt Date: 20241018
  Transmission Date: 20250114
  Serious: Yes (Hospitalization)
  Sender: ACCORD
  Company Number: ES-MLMSERVICE-20241002-PI214556-00295-1

PATIENT
  Age: 20 Year
  Sex: Male

DRUGS (2)
  1. SERTRALINE [Suspect]
     Active Substance: SERTRALINE HYDROCHLORIDE
     Indication: Autism spectrum disorder
  2. RISPERIDONE [Concomitant]
     Active Substance: RISPERIDONE
     Indication: Autism spectrum disorder
     Dosage: LIKEWISE, RISPERIDONE DOSE WAS INCREASED, ALREADY PRESCRIBED IN OUTPATIENT CARE

REACTIONS (2)
  - Affective disorder [Recovering/Resolving]
  - Off label use [Unknown]
